FAERS Safety Report 16746743 (Version 1)
Quarter: 2019Q3

REPORT INFORMATION
  Report Type: Spontaneous
  Country: US (occurrence: US)
  Receive Date: 20190827
  Receipt Date: 20190827
  Transmission Date: 20191005
  Serious: Yes (Other)
  Sender: FDA-Public Use
  Company Number: US-PFIZER INC-2019366343

PATIENT
  Age: 25 Year
  Sex: Female
  Weight: 102.2 kg

DRUGS (4)
  1. NADOLOL. [Suspect]
     Active Substance: NADOLOL
     Dosage: UNK
  2. FREMANEZUMAB [Suspect]
     Active Substance: FREMANEZUMAB
     Dosage: UNK
  3. PANTOPRAZOLE [Suspect]
     Active Substance: PANTOPRAZOLE
     Dosage: UNK
  4. XARELTO [Suspect]
     Active Substance: RIVAROXABAN
     Dosage: UNK

REACTIONS (11)
  - Weight loss poor [Unknown]
  - Cyst [Not Recovered/Not Resolved]
  - Thrombosis [Unknown]
  - Emotional disorder [Unknown]
  - Pain in extremity [Not Recovered/Not Resolved]
  - Deep vein thrombosis [Unknown]
  - Fibromyalgia [Unknown]
  - Abdominal pain lower [Not Recovered/Not Resolved]
  - Anxiety [Unknown]
  - Chest pain [Unknown]
  - Nervousness [Unknown]

NARRATIVE: CASE EVENT DATE: 2019
